FAERS Safety Report 6832553-8 (Version None)
Quarter: 2010Q3

REPORT INFORMATION
  Report Type: 
  Country: None (occurrence: None)
  Receive Date: 20100712
  Receipt Date: 20070314
  Transmission Date: 20110219
  Serious: No
  Sender: FDA-Public Use
  Company Number: US-PFIZER INC-2007021155

PATIENT
  Sex: Female
  Weight: 51.26 kg

DRUGS (2)
  1. CHANTIX [Suspect]
     Indication: SMOKING CESSATION THERAPY
     Dosage: DAILY: EVERY DAY
     Dates: start: 20070201
  2. ADVIL LIQUI-GELS [Concomitant]

REACTIONS (4)
  - ARTHRALGIA [None]
  - CONSTIPATION [None]
  - MALAISE [None]
  - NAUSEA [None]
